FAERS Safety Report 4284089-9 (Version None)
Quarter: 2004Q1

REPORT INFORMATION
  Report Type: 
  Country: None (occurrence: None)
  Receive Date: 20040130
  Receipt Date: 20040119
  Transmission Date: 20041129
  Serious: Yes (Hospitalization)
  Sender: FDA-Public Use
  Company Number: 2004UW00942

PATIENT
  Sex: Male

DRUGS (1)
  1. PULMICORT [Suspect]
     Indication: ASTHMA
     Dosage: 400 UG BID IH
     Route: 055
     Dates: start: 20031101

REACTIONS (2)
  - ASTHMA [None]
  - BLOOD GLUCOSE INCREASED [None]
